FAERS Safety Report 13486528 (Version 1)
Quarter: 2017Q2

REPORT INFORMATION
  Report Type: Spontaneous
  Country: US (occurrence: US)
  Receive Date: 20170426
  Receipt Date: 20170426
  Transmission Date: 20170830
  Serious: Yes (Hospitalization, Other)
  Sender: FDA-Public Use
  Company Number: US-JNJFOC-20170421575

PATIENT

DRUGS (1)
  1. HUMAN CLOTTABLE PROTEIN/HUMAN THROMBIN [Suspect]
     Active Substance: FIBRINOGEN HUMAN\THROMBIN HUMAN
     Indication: HERNIA REPAIR
     Route: 061

REACTIONS (5)
  - Wound dehiscence [Unknown]
  - Pulmonary embolism [Unknown]
  - Off label use [Unknown]
  - Wound haematoma [Unknown]
  - Seroma [Unknown]
